FAERS Safety Report 14477498 (Version 1)
Quarter: 2018Q1

REPORT INFORMATION
  Report Type: Report from Study
  Country: US (occurrence: US)
  Receive Date: 20180201
  Receipt Date: 20180201
  Transmission Date: 20180509
  Serious: No
  Sender: FDA-Public Use
  Company Number: US-EXELIXIS-CABO-17010236

PATIENT
  Sex: Female

DRUGS (8)
  1. CABOMETYX [Suspect]
     Active Substance: CABOZANTINIB S-MALATE
     Indication: RENAL CANCER
     Dosage: 60 MG, QD
     Route: 048
     Dates: start: 20170430
  2. OXYCODONE [Concomitant]
     Active Substance: OXYCODONE
  3. METOPROLOL. [Concomitant]
     Active Substance: METOPROLOL
  4. DECADRON [Concomitant]
     Active Substance: DEXAMETHASONE
  5. GABAPENTIN. [Concomitant]
     Active Substance: GABAPENTIN
  6. XANAX [Concomitant]
     Active Substance: ALPRAZOLAM
  7. OMEPRAZOLE. [Concomitant]
     Active Substance: OMEPRAZOLE
  8. FENTANYL. [Concomitant]
     Active Substance: FENTANYL

REACTIONS (7)
  - Decreased appetite [Unknown]
  - Bone disorder [Unknown]
  - Weight decreased [Unknown]
  - Vomiting [Unknown]
  - Pain in jaw [Unknown]
  - Diarrhoea [Not Recovered/Not Resolved]
  - Memory impairment [Unknown]
